FAERS Safety Report 24697688 (Version 1)
Quarter: 2024Q4

REPORT INFORMATION
  Report Type: Spontaneous
  Country: JP (occurrence: JP)
  Receive Date: 20241204
  Receipt Date: 20241204
  Transmission Date: 20250115
  Serious: Yes (Other)
  Sender: BRISTOL-MYERS SQUIBB COMPANY
  Company Number: JP-BRISTOL-MYERS SQUIBB COMPANY-2024-187464

PATIENT
  Age: 73 Year
  Sex: Female
  Weight: 58 kg

DRUGS (8)
  1. VIDAZA [Suspect]
     Active Substance: AZACITIDINE
     Indication: Acute myeloid leukaemia
     Dosage: AZA100*7DAYS
     Route: 042
     Dates: start: 202207
  2. VIDAZA [Suspect]
     Active Substance: AZACITIDINE
     Dosage: 2ND TO 8TH CYCLE, AZA100*5DAYS
     Route: 042
     Dates: start: 202209, end: 2023
  3. CYTARABINE [Suspect]
     Active Substance: CYTARABINE
     Indication: Acute myeloid leukaemia
     Route: 042
     Dates: start: 20230516
  4. ADALAT CC [Concomitant]
     Active Substance: NIFEDIPINE
     Indication: Product used for unknown indication
  5. VENCLEXTA [Concomitant]
     Active Substance: VENETOCLAX
     Indication: Acute myeloid leukaemia
     Dates: start: 202207, end: 2023
  6. FLUCONAZOLE [Concomitant]
     Active Substance: FLUCONAZOLE
     Indication: Product used for unknown indication
  7. XOSPATA [GILTERITINIB FUMARATE] [Concomitant]
     Indication: Acute myeloid leukaemia
     Dosage: NO RESPONSE
     Dates: start: 202303
  8. DAUNORUBICIN HYDROCHLORIDE [Concomitant]
     Active Substance: DAUNORUBICIN HYDROCHLORIDE
     Indication: Acute myeloid leukaemia
     Dates: start: 20230516

REACTIONS (2)
  - Febrile neutropenia [Unknown]
  - Panniculitis [Unknown]

NARRATIVE: CASE EVENT DATE: 20230524
